FAERS Safety Report 9312390 (Version 1)
Quarter: 2013Q2

REPORT INFORMATION
  Report Type: Spontaneous
  Country: US (occurrence: None)
  Receive Date: 20130502
  Receipt Date: 20130502
  Transmission Date: 20140414
  Serious: Yes (Death)
  Sender: FDA-Public Use
  Company Number: 1053087-2013-00005

PATIENT
  Age: 60 Year
  Sex: Male
  Weight: 103.42 kg

DRUGS (3)
  1. SODIUM CITRATE [Suspect]
     Indication: APHERESIS
     Dosage: 1 BAG PER PROCEDURE/IV
     Route: 042
     Dates: start: 20130409
  2. METFORMIN [Concomitant]
  3. BENICAR [Concomitant]

REACTIONS (1)
  - Vomiting [None]
